FAERS Safety Report 26103823 (Version 1)
Quarter: 2025Q4

REPORT INFORMATION
  Report Type: Spontaneous
  Country: US (occurrence: US)
  Receive Date: 20251129
  Receipt Date: 20251129
  Transmission Date: 20260119
  Serious: No
  Sender: SUNOVION
  Company Number: US-SMPA-2025SPA014537

PATIENT
  Age: 87 Year
  Sex: Female

DRUGS (1)
  1. GEMTESA [Suspect]
     Active Substance: VIBEGRON
     Indication: Genitourinary symptom
     Dosage: 75 MG, QD
     Route: 048

REACTIONS (3)
  - Dysphagia [Recovered/Resolved]
  - Throat tightness [Recovered/Resolved]
  - Dysphonia [Recovered/Resolved]
